FAERS Safety Report 9162239 (Version 1)
Quarter: 2013Q1

REPORT INFORMATION
  Report Type: Spontaneous
  Country: US (occurrence: None)
  Receive Date: 20130222
  Receipt Date: 20130222
  Transmission Date: 20140127
  Serious: Yes (Other)
  Sender: FDA-Public Use
  Company Number: ACO_23607_2010

PATIENT
  Age: 45 Year
  Sex: Female

DRUGS (12)
  1. AMPYRA [Suspect]
     Dates: start: 20100621, end: 20100912
  2. ARICEPT (DONEPEZIL HYDROCHLORIDE) [Concomitant]
  3. PROVIGIL (MODAFINIL) [Concomitant]
  4. CELEBREX (CELECOXIB) [Concomitant]
  5. TOVIAZ (FESOTERODINE FUMARATE) [Concomitant]
  6. VITAMIN D (VITAMIN D NOS) [Concomitant]
  7. FOLBIC (CYANOCOBALAMIN, FOLIC ACID, PYRIDOXINE HYDROCHLORIDE) [Concomitant]
  8. BACLOFEN (BACLOFEN) (BACLOFEN) [Concomitant]
  9. LEXAPRO (ESCITALOPRAM OXALATE) [Concomitant]
  10. IBUPROFEN (IBUPROFEN) [Concomitant]
  11. TYSABRI (NATALIZUMAB) [Concomitant]
  12. OXYCODONE (OXYCODONE) [Concomitant]

REACTIONS (6)
  - Convulsion [None]
  - Diabetes mellitus [None]
  - Nausea [None]
  - Dizziness [None]
  - Urinary tract infection [None]
  - Tremor [None]
